FAERS Safety Report 7484338-X (Version None)
Quarter: 2011Q2

REPORT INFORMATION
  Report Type: 
  Country: None (occurrence: None)
  Receive Date: 20110517
  Receipt Date: 20101216
  Transmission Date: 20111010
  Serious: Yes (Life-Threatening, Other)
  Sender: FDA-Public Use
  Company Number: CY-BAYER-201047920GPV

PATIENT
  Age: 35 Year
  Sex: Female
  Weight: 75 kg

DRUGS (2)
  1. ULTRAVIST 370 [Suspect]
     Indication: ABDOMEN SCAN
     Dosage: 70 ML, ONCE
     Route: 042
     Dates: start: 20101122, end: 20101122
  2. BISOPROLOL FUMARATE [Concomitant]
     Dosage: DAILY DOSE 5 MG
     Route: 048

REACTIONS (8)
  - CONVULSION [None]
  - TACHYCARDIA [None]
  - LOSS OF CONSCIOUSNESS [None]
  - FAECAL INCONTINENCE [None]
  - URINARY INCONTINENCE [None]
  - HYPOTENSION [None]
  - ANAPHYLACTIC SHOCK [None]
  - RASH [None]
